FAERS Safety Report 19397805 (Version 2)
Quarter: 2021Q2

REPORT INFORMATION
  Report Type: Report from Study
  Country: JP (occurrence: JP)
  Receive Date: 20210610
  Receipt Date: 20210615
  Transmission Date: 20210717
  Serious: Yes (Other)
  Sender: FDA-Public Use
  Company Number: JP-CELLTRION INC.-2020JP024618

PATIENT

DRUGS (7)
  1. CT?P13 [Suspect]
     Active Substance: INFLIXIMAB-DYYB
     Dosage: 455 MILLIGRAM (WEIGHT: 91 KG)
     Route: 041
     Dates: start: 20191105, end: 20191105
  2. CT?P13 [Suspect]
     Active Substance: INFLIXIMAB-DYYB
     Dosage: 900 MILLIGRAM (WEIGHT: 90KG)
     Route: 041
     Dates: start: 20190423, end: 20190423
  3. CT?P13 [Suspect]
     Active Substance: INFLIXIMAB-DYYB
     Dosage: 460 MILLIGRAM (WEIGHT: 92 KG)
     Route: 041
     Dates: start: 20201124, end: 20201124
  4. MESALAZINE [Concomitant]
     Active Substance: MESALAMINE
     Dosage: 3000 MILLIGRAM/DAY
     Route: 048
  5. CT?P13 [Suspect]
     Active Substance: INFLIXIMAB-DYYB
     Dosage: 900 MILLIGRAM (WEIGHT: 90KG)
     Route: 041
     Dates: start: 20190108, end: 20190108
  6. CT?P13 [Suspect]
     Active Substance: INFLIXIMAB-DYYB
     Indication: CROHN^S DISEASE
     Dosage: 880 MILLIGRAM (WEIGHT: 88 KG)
     Route: 041
     Dates: start: 20181113, end: 20181113
  7. CT?P13 [Suspect]
     Active Substance: INFLIXIMAB-DYYB
     Dosage: 920 MILLIGRAM (WEIGHT: 92KG)
     Route: 041
     Dates: start: 20190305, end: 20190305

REACTIONS (12)
  - Pharyngotonsillitis [Recovered/Resolved]
  - Pharyngotonsillitis [Recovered/Resolved]
  - Therapeutic product effect incomplete [Unknown]
  - Off label use [Unknown]
  - Seasonal allergy [Recovered/Resolved]
  - Subileus [Recovered/Resolved]
  - Hepatic function abnormal [Recovered/Resolved]
  - Overdose [Unknown]
  - Product use issue [Unknown]
  - Anaemia [Not Recovered/Not Resolved]
  - Oropharyngeal pain [Recovered/Resolved]
  - Seasonal allergy [Recovered/Resolved]

NARRATIVE: CASE EVENT DATE: 20190223
